FAERS Safety Report 4276733-7 (Version None)
Quarter: 2004Q1

REPORT INFORMATION
  Report Type: 
  Country: None (occurrence: None)
  Receive Date: 20040120
  Receipt Date: 20040108
  Transmission Date: 20041129
  Serious: Yes (Hospitalization)
  Sender: FDA-Public Use
  Company Number: 2003AP04544

PATIENT
  Age: 27 Year
  Sex: Female

DRUGS (8)
  1. OMEPRAZOLE [Suspect]
     Indication: GASTRIC ULCER
     Dosage: 20 MG DAILY PO
     Route: 048
     Dates: start: 20031010, end: 20031022
  2. OMEPRAZOLE [Suspect]
     Indication: HELICOBACTER INFECTION
     Dosage: 20 MG DAILY PO
     Route: 048
     Dates: start: 20031010, end: 20031022
  3. CLARITHROMYCIN [Suspect]
     Dosage: 800 MG DAILY PO
     Route: 048
     Dates: start: 20031023, end: 20031029
  4. AMOXICILLIN [Suspect]
     Dates: start: 20031023, end: 20031029
  5. OMEPRAZOLE [Suspect]
     Indication: GASTRIC ULCER
     Dosage: 40 MG DAILY PO
     Route: 048
     Dates: start: 20031023, end: 20031029
  6. OMEPRAZOLE [Suspect]
     Indication: HELICOBACTER INFECTION
     Dosage: 40 MG DAILY PO
     Route: 048
     Dates: start: 20031023, end: 20031029
  7. OMEPRAZOLE [Suspect]
     Indication: GASTRIC ULCER
     Dosage: 20 MG DAILY PO
     Route: 048
     Dates: start: 20031030, end: 20031107
  8. OMEPRAZOLE [Suspect]
     Indication: HELICOBACTER INFECTION
     Dosage: 20 MG DAILY PO
     Route: 048
     Dates: start: 20031030, end: 20031107

REACTIONS (9)
  - COLLAGEN-VASCULAR DISEASE [None]
  - ENTEROCOLITIS HAEMORRHAGIC [None]
  - HEPATIC CIRRHOSIS [None]
  - LABORATORY TEST INTERFERENCE [None]
  - LARGE INTESTINAL ULCER [None]
  - PLATELET COUNT DECREASED [None]
  - PORTAL HYPERTENSION [None]
  - SPLENOMEGALY [None]
  - THROMBOCYTHAEMIA [None]
